FAERS Safety Report 7880392-1 (Version None)
Quarter: 2011Q4

REPORT INFORMATION
  Report Type: 
  Country: None (occurrence: None)
  Receive Date: 20111101
  Receipt Date: 20111024
  Transmission Date: 20120403
  Serious: Yes (Death, Hospitalization)
  Sender: FDA-Public Use
  Company Number: PHHY2011GT89848

PATIENT
  Sex: Female

DRUGS (1)
  1. GLEEVEC [Suspect]
     Indication: CHRONIC MYELOID LEUKAEMIA
     Dosage: 400 MG, DAILY
     Dates: start: 20100719

REACTIONS (5)
  - BLAST CELL CRISIS [None]
  - THROMBOCYTOPENIA [None]
  - DEATH [None]
  - LEUKOCYTOSIS [None]
  - MALAISE [None]
